FAERS Safety Report 17389543 (Version 1)
Quarter: 2020Q1

REPORT INFORMATION
  Report Type: Spontaneous
  Country: US (occurrence: US)
  Receive Date: 20200207
  Receipt Date: 20200207
  Transmission Date: 20200409
  Serious: No
  Sender: FDA-Public Use
  Company Number: US-TEVA-2020-US-1181823

PATIENT
  Sex: Male

DRUGS (1)
  1. TESTOSTERONE. [Suspect]
     Active Substance: TESTOSTERONE
     Dosage: ENTIRE TUBE - 5 MG
     Route: 065
     Dates: start: 20200129

REACTIONS (3)
  - Product odour abnormal [Unknown]
  - Asthma [Unknown]
  - Product substitution issue [Unknown]
